FAERS Safety Report 14391394 (Version 4)
Quarter: 2018Q1

REPORT INFORMATION
  Report Type: Spontaneous
  Country: JP (occurrence: JP)
  Receive Date: 20180116
  Receipt Date: 20180302
  Transmission Date: 20180509
  Serious: Yes (Death, Other)
  Sender: FDA-Public Use
  Company Number: JP-009507513-1710JPN002221J

PATIENT
  Age: 68 Year
  Sex: Male

DRUGS (3)
  1. TAZOPIPE [Concomitant]
     Active Substance: PIPERACILLIN SODIUM\TAZOBACTAM SODIUM
     Dosage: UNK
     Route: 041
     Dates: start: 201710, end: 201710
  2. MEROPEN [Concomitant]
     Active Substance: MEROPENEM
     Dosage: UNK
     Route: 041
     Dates: start: 201710, end: 201710
  3. CUBICIN [Suspect]
     Active Substance: DAPTOMYCIN
     Indication: STAPHYLOCOCCAL INFECTION
     Dosage: 6 MG, QD
     Route: 041
     Dates: start: 20171011, end: 20171013

REACTIONS (2)
  - Acute respiratory failure [Fatal]
  - Pulmonary embolism [Fatal]

NARRATIVE: CASE EVENT DATE: 20171013
